FAERS Safety Report 5918309-9 (Version None)
Quarter: 2008Q4

REPORT INFORMATION
  Report Type: 
  Country: None (occurrence: None)
  Receive Date: 20081010
  Receipt Date: 20080923
  Transmission Date: 20090506
  Serious: Yes (Disabling)
  Sender: FDA-Public Use
  Company Number: 1-16682545

PATIENT
  Sex: Male

DRUGS (1)
  1. FENTANYL TRANSDERMAL SYSTEM [Suspect]
     Dosage: TRANSDERMAL
     Route: 062

REACTIONS (4)
  - BURNS THIRD DEGREE [None]
  - INJURY [None]
  - MALAISE [None]
  - PAIN [None]
